FAERS Safety Report 8893341 (Version 24)
Quarter: 2016Q3

REPORT INFORMATION
  Report Type: Report from Study
  Country: CA (occurrence: CA)
  Receive Date: 20121108
  Receipt Date: 20160909
  Transmission Date: 20161109
  Serious: Yes (Other)
  Sender: FDA-Public Use
  Company Number: PHHY2011CA098517

PATIENT
  Age: 56 Year
  Sex: Male

DRUGS (1)
  1. SANDOSTATIN LAR DEPOT [Suspect]
     Active Substance: OCTREOTIDE ACETATE
     Indication: ACROMEGALY
     Dosage: 40 MG, QMO
     Route: 030
     Dates: start: 20060306

REACTIONS (13)
  - Blood pressure diastolic increased [Unknown]
  - Bite [Unknown]
  - Thyroid disorder [Unknown]
  - Cellulitis [Unknown]
  - Haematochezia [Unknown]
  - Musculoskeletal stiffness [Unknown]
  - Blood pressure increased [Unknown]
  - Occult blood positive [Unknown]
  - Pain in extremity [Unknown]
  - Needle issue [Unknown]
  - Haemorrhoids [Unknown]
  - Joint stiffness [Unknown]
  - Stress [Unknown]

NARRATIVE: CASE EVENT DATE: 20121024
